FAERS Safety Report 5014841-3 (Version None)
Quarter: 2006Q2

REPORT INFORMATION
  Report Type: 
  Country: None (occurrence: None)
  Receive Date: 20060419
  Receipt Date: 20051019
  Transmission Date: 20061013
  Serious: Yes (Hospitalization, Other)
  Sender: FDA-Public Use
  Company Number: 2005-04004

PATIENT
  Age: 40 Year
  Sex: Female

DRUGS (2)
  1. FERRLECIT [Suspect]
     Indication: IRON DEFICIENCY ANAEMIA
     Dosage: 250 MG/100ML NS @ 50ML/HR, INTRAVENOUS
     Route: 042
     Dates: start: 20041220, end: 20041220
  2. PROCRIT [Concomitant]

REACTIONS (4)
  - ABDOMINAL PAIN [None]
  - HYPOTENSION [None]
  - NAUSEA [None]
  - VOMITING [None]
